FAERS Safety Report 8596921-9 (Version None)
Quarter: 2012Q3

REPORT INFORMATION
  Report Type: 
  Country: None (occurrence: None)
  Receive Date: 20120815
  Receipt Date: 20120809
  Transmission Date: 20120928
  Serious: Yes (Hospitalization)
  Sender: FDA-Public Use
  Company Number: IT-ABBOTT-11P-083-0865555-00

PATIENT
  Sex: Male

DRUGS (3)
  1. SEROQUEL [Suspect]
     Indication: MAJOR DEPRESSION
     Route: 048
     Dates: start: 20110601, end: 20111001
  2. ESCITALOPRAM [Suspect]
     Indication: MAJOR DEPRESSION
     Route: 048
     Dates: start: 20110601, end: 20111001
  3. DEPAKENE [Suspect]
     Indication: MAJOR DEPRESSION
     Route: 048
     Dates: start: 20110601, end: 20111001

REACTIONS (2)
  - HYPERTHERMIA [None]
  - SUICIDE ATTEMPT [None]
